FAERS Safety Report 9434922 (Version 1)
Quarter: 2013Q3

REPORT INFORMATION
  Report Type: Spontaneous
  Country: US (occurrence: US)
  Receive Date: 20130801
  Receipt Date: 20130801
  Transmission Date: 20140515
  Serious: Yes (Hospitalization)
  Sender: FDA-Public Use
  Company Number: US-SANOFI-AVENTIS-2013SA076701

PATIENT
  Age: 4 Year
  Sex: Male

DRUGS (1)
  1. ALLEGRA [Suspect]
     Route: 065

REACTIONS (1)
  - Anaphylactic reaction [Not Recovered/Not Resolved]
